FAERS Safety Report 6320277-5 (Version None)
Quarter: 2009Q3

REPORT INFORMATION
  Report Type: 
  Country: None (occurrence: None)
  Receive Date: 20090822
  Receipt Date: 20081112
  Transmission Date: 20100115
  Serious: No
  Sender: FDA-Public Use
  Company Number: US-ABBOTT-08P-163-0484582-00

PATIENT
  Age: 55 Year
  Sex: Female

DRUGS (5)
  1. NIASPAN [Suspect]
     Indication: BLOOD CHOLESTEROL INCREASED
     Dosage: 500MG DAILY AT BEDTIME
     Route: 048
     Dates: start: 20080701, end: 20080701
  2. SUMATRIPTAN SUCCINATE [Concomitant]
     Indication: MIGRAINE
     Dosage: AS NEEDED
     Route: 048
  3. OMEPRAZOLE MAGNESIUM [Concomitant]
     Indication: GASTRIC ULCER
     Route: 048
  4. BRAND NAME OF VERAPAMIL [Concomitant]
     Indication: DRUG USE FOR UNKNOWN INDICATION
     Route: 048
  5. TERIPARATIDE [Concomitant]
     Indication: BONE DISORDER

REACTIONS (5)
  - FEELING HOT [None]
  - FLUSHING [None]
  - OEDEMA PERIPHERAL [None]
  - PAIN [None]
  - TINNITUS [None]
